FAERS Safety Report 17939696 (Version 1)
Quarter: 2020Q2

REPORT INFORMATION
  Report Type: Spontaneous
  Country: FR (occurrence: FR)
  Receive Date: 20200625
  Receipt Date: 20200625
  Transmission Date: 20200714
  Serious: Yes (Hospitalization)
  Sender: FDA-Public Use
  Company Number: FR-ROCHE-2626629

PATIENT
  Age: 32 Year
  Sex: Female
  Weight: 94 kg

DRUGS (4)
  1. THERALENE [Suspect]
     Active Substance: TRIMEPRAZINE
     Indication: TOXICITY TO VARIOUS AGENTS
     Route: 048
     Dates: start: 20200504, end: 20200504
  2. TERCIAN [CYAMEMAZINE] [Suspect]
     Active Substance: CYAMEMAZINE
     Indication: TOXICITY TO VARIOUS AGENTS
     Route: 048
     Dates: start: 20200504, end: 20200504
  3. VALIUM [Suspect]
     Active Substance: DIAZEPAM
     Indication: TOXICITY TO VARIOUS AGENTS
     Route: 048
     Dates: start: 20200504, end: 20200504
  4. DULOXETINE. [Suspect]
     Active Substance: DULOXETINE
     Indication: TOXICITY TO VARIOUS AGENTS
     Route: 048
     Dates: start: 20200504, end: 20200504

REACTIONS (2)
  - Tachycardia [Recovered/Resolved]
  - Somnolence [Recovered/Resolved]

NARRATIVE: CASE EVENT DATE: 20200504
